FAERS Safety Report 9642160 (Version 3)
Quarter: 2013Q4

REPORT INFORMATION
  Report Type: Report from Study
  Country: FR (occurrence: FR)
  Receive Date: 20131023
  Receipt Date: 20131213
  Transmission Date: 20140711
  Serious: Yes (Hospitalization, Other)
  Sender: FDA-Public Use
  Company Number: FR-ROCHE-1288630

PATIENT
  Age: 59 Year
  Sex: Female
  Weight: 46 kg

DRUGS (16)
  1. METHOXY POLYETHYLENE GLYCOL-EPOETIN BETA [Suspect]
     Indication: NEPHROGENIC ANAEMIA
     Route: 042
     Dates: start: 20100604
  2. METHOXY POLYETHYLENE GLYCOL-EPOETIN BETA [Suspect]
     Route: 042
     Dates: start: 20131009
  3. EMLA PATCH [Concomitant]
     Route: 065
     Dates: start: 20080111
  4. LEVOTHYROX [Concomitant]
     Dosage: DAILY
     Route: 065
     Dates: start: 20090415
  5. PREVISCAN (FRANCE) [Concomitant]
     Dosage: DAILY
     Route: 065
     Dates: start: 20111019, end: 20131005
  6. TAHOR [Concomitant]
     Dosage: DAILY
     Route: 065
     Dates: start: 20080111
  7. XALATAN [Concomitant]
     Route: 065
     Dates: start: 20120201
  8. INEXIUM [Concomitant]
     Dosage: DAILY
     Route: 065
     Dates: start: 20070820
  9. CARDENSIEL [Concomitant]
     Dosage: DAILY
     Route: 065
     Dates: start: 20120425
  10. KARDEGIC [Concomitant]
     Dosage: DAILY
     Route: 065
     Dates: start: 20121122
  11. CANDESARTAN [Concomitant]
     Dosage: DAILY
     Route: 065
     Dates: end: 20130626
  12. RESIKALI [Concomitant]
     Route: 065
     Dates: start: 20130708
  13. DIPROSONE [Concomitant]
     Route: 065
     Dates: start: 20130727
  14. ESTREVA [Concomitant]
     Route: 065
     Dates: start: 20130807
  15. LEVOCARNIL [Concomitant]
     Route: 065
     Dates: start: 20110311
  16. LOVENOX [Concomitant]
     Route: 065
     Dates: start: 20131005

REACTIONS (3)
  - Invasive lobular breast carcinoma [Not Recovered/Not Resolved]
  - Haematoma infection [Recovering/Resolving]
  - Anaemia [Recovered/Resolved]
